FAERS Safety Report 20906105 (Version 1)
Quarter: 2022Q2

REPORT INFORMATION
  Report Type: Spontaneous
  Country: US (occurrence: US)
  Receive Date: 20220602
  Receipt Date: 20220602
  Transmission Date: 20220720
  Serious: No
  Sender: FDA-Public Use
  Company Number: US-COLLEGIUM PHARMACEUTICAL, INC.-2021CGM00987

PATIENT
  Age: 59 Year
  Sex: Female

DRUGS (10)
  1. XTAMPZA ER [Suspect]
     Active Substance: OXYCODONE
     Indication: Fibromyalgia
     Dosage: 27 MG, 2X/DAY
     Route: 048
     Dates: start: 20210819
  2. XTAMPZA ER [Suspect]
     Active Substance: OXYCODONE
     Indication: Pain
  3. XTAMPZA ER [Suspect]
     Active Substance: OXYCODONE
     Indication: Bone pain
  4. XTAMPZA ER [Suspect]
     Active Substance: OXYCODONE
     Indication: Myalgia
  5. XTAMPZA ER [Suspect]
     Active Substance: OXYCODONE
     Indication: Fibromyalgia
  6. XTAMPZA ER [Suspect]
     Active Substance: OXYCODONE
     Indication: Pain
  7. XTAMPZA ER [Suspect]
     Active Substance: OXYCODONE
     Indication: Bone pain
  8. XTAMPZA ER [Suspect]
     Active Substance: OXYCODONE
     Indication: Myalgia
  9. OXY HCL [Concomitant]
     Dosage: 5 MG, 3X/DAY
  10. VITAMIN D [Concomitant]
     Active Substance: VITAMIN D NOS
     Dosage: 50000 IU, 1X/WEEK
     Dates: start: 2016

REACTIONS (3)
  - Pruritus [Not Recovered/Not Resolved]
  - Rash [Not Recovered/Not Resolved]
  - Drug ineffective [Not Recovered/Not Resolved]

NARRATIVE: CASE EVENT DATE: 20210819
